FAERS Safety Report 14218245 (Version 2)
Quarter: 2018Q1

REPORT INFORMATION
  Report Type: Report from Study
  Country: JP (occurrence: JP)
  Receive Date: 20171123
  Receipt Date: 20180310
  Transmission Date: 20180508
  Serious: Yes (Hospitalization)
  Sender: FDA-Public Use
  Company Number: JP-AMGEN-JPNSP2017174486

PATIENT
  Age: 90 Year
  Sex: Male
  Weight: 65 kg

DRUGS (4)
  1. EDIROL [Concomitant]
     Active Substance: ELDECALCITOL
     Dosage: 1 DF, QD
     Route: 048
     Dates: end: 20170522
  2. DENOSUMAB [Suspect]
     Active Substance: DENOSUMAB
     Indication: OSTEOPOROSIS
     Dosage: 60 MG, UNK
     Route: 058
     Dates: start: 20131129
  3. DENOSUMAB [Suspect]
     Active Substance: DENOSUMAB
     Dosage: 60 MG, UNK
     Route: 058
     Dates: start: 20160521
  4. DENOSUMAB [Suspect]
     Active Substance: DENOSUMAB
     Dosage: 60 MG, UNK
     Route: 058
     Dates: start: 20161124, end: 20170522

REACTIONS (1)
  - Tibia fracture [Unknown]

NARRATIVE: CASE EVENT DATE: 20170626
